FAERS Safety Report 25201226 (Version 5)
Quarter: 2025Q4

REPORT INFORMATION
  Report Type: Spontaneous
  Country: JP (occurrence: JP)
  Receive Date: 20250416
  Receipt Date: 20251028
  Transmission Date: 20260117
  Serious: Yes (Disabling, Other)
  Sender: SANDOZ
  Company Number: JP-asahikaseip-2025-AER-01899

PATIENT
  Age: 93 Year
  Sex: Female
  Weight: 50 kg

DRUGS (15)
  1. RECLAST [Suspect]
     Active Substance: ZOLEDRONIC ACID
     Indication: Osteoporosis
     Dosage: 5 MG, INJECTION
     Route: 041
     Dates: start: 20250226, end: 20250226
  2. AMLODIPINE [Concomitant]
     Active Substance: AMLODIPINE BESYLATE
     Dosage: 2.5 MG, QD
     Route: 048
  3. AMLODIPINE [Concomitant]
     Active Substance: AMLODIPINE BESYLATE
     Indication: Product used for unknown indication
     Dosage: UNK
     Route: 048
  4. ASPIRIN [Concomitant]
     Active Substance: ASPIRIN
     Dosage: 100 MG, QD
     Route: 048
     Dates: end: 20250402
  5. ASPIRIN [Concomitant]
     Active Substance: ASPIRIN
     Indication: Product used for unknown indication
     Dosage: UNK
     Route: 048
     Dates: end: 20250402
  6. PRASUGREL HYDROCHLORIDE [Concomitant]
     Active Substance: PRASUGREL HYDROCHLORIDE
     Dosage: 3.75 MG, QD
     Route: 048
     Dates: start: 20250401
  7. PRASUGREL HYDROCHLORIDE [Concomitant]
     Active Substance: PRASUGREL HYDROCHLORIDE
     Indication: Product used for unknown indication
     Dosage: UNK
     Route: 048
     Dates: end: 20250401
  8. ELOBIXIBAT [Concomitant]
     Active Substance: ELOBIXIBAT
     Dosage: 10 MG, QD
     Route: 048
     Dates: start: 20250303
  9. ELOBIXIBAT [Concomitant]
     Active Substance: ELOBIXIBAT
     Indication: Product used for unknown indication
     Dosage: UNK
     Route: 048
     Dates: start: 20250303
  10. ISOSORBIDE MONONITRATE [Concomitant]
     Active Substance: ISOSORBIDE MONONITRATE
     Indication: Product used for unknown indication
     Dosage: 10MG IN THE MORNING AND 20MG IN THE  EVENING
     Route: 048
  11. ISOSORBIDE MONONITRATE [Concomitant]
     Active Substance: ISOSORBIDE MONONITRATE
     Dosage: UNK
     Route: 048
  12. JANUVIA [Concomitant]
     Active Substance: SITAGLIPTIN PHOSPHATE
     Dosage: 50 MG, QD
     Route: 048
     Dates: start: 20250327
  13. JANUVIA [Concomitant]
     Active Substance: SITAGLIPTIN PHOSPHATE
     Indication: Product used for unknown indication
     Dosage: UNK
     Route: 048
     Dates: end: 20250327
  14. MAGNESIUM OXIDE [Concomitant]
     Active Substance: MAGNESIUM OXIDE
     Dosage: 330 MG, Q8H
     Route: 048
     Dates: start: 20250220, end: 20250328
  15. MAGNESIUM OXIDE [Concomitant]
     Active Substance: MAGNESIUM OXIDE
     Indication: Product used for unknown indication
     Dosage: UNK
     Route: 048
     Dates: end: 20250328

REACTIONS (2)
  - Acute kidney injury [Not Recovered/Not Resolved]
  - Renal disorder [Not Recovered/Not Resolved]

NARRATIVE: CASE EVENT DATE: 20250326
